FAERS Safety Report 25714612 (Version 1)
Quarter: 2025Q3

REPORT INFORMATION
  Report Type: Spontaneous
  Country: CN (occurrence: CN)
  Receive Date: 20250822
  Receipt Date: 20250822
  Transmission Date: 20251020
  Serious: Yes (Life-Threatening, Other)
  Sender: BRISTOL-MYERS SQUIBB COMPANY
  Company Number: CN-MLMSERVICE-20250807-PI605747-00165-1

PATIENT
  Age: 62 Year
  Sex: Male

DRUGS (30)
  1. LENALIDOMIDE [Suspect]
     Active Substance: LENALIDOMIDE
     Indication: Diffuse large B-cell lymphoma stage IV
     Dates: start: 20201110
  2. LENALIDOMIDE [Suspect]
     Active Substance: LENALIDOMIDE
     Indication: Metastases to spine
  3. LENALIDOMIDE [Suspect]
     Active Substance: LENALIDOMIDE
     Indication: Metastases to pleura
  4. LENALIDOMIDE [Suspect]
     Active Substance: LENALIDOMIDE
     Indication: Metastases to pancreas
  5. LENALIDOMIDE [Suspect]
     Active Substance: LENALIDOMIDE
     Indication: Metastases to lymph nodes
  6. LENALIDOMIDE [Suspect]
     Active Substance: LENALIDOMIDE
     Indication: Metastases to abdominal cavity
  7. GEMCITABINE [Suspect]
     Active Substance: GEMCITABINE
     Indication: Diffuse large B-cell lymphoma stage IV
     Dates: start: 20201110
  8. GEMCITABINE [Suspect]
     Active Substance: GEMCITABINE
     Indication: Metastases to spine
  9. GEMCITABINE [Suspect]
     Active Substance: GEMCITABINE
     Indication: Metastases to pleura
  10. GEMCITABINE [Suspect]
     Active Substance: GEMCITABINE
     Indication: Metastases to pancreas
  11. GEMCITABINE [Suspect]
     Active Substance: GEMCITABINE
     Indication: Metastases to lymph nodes
  12. GEMCITABINE [Suspect]
     Active Substance: GEMCITABINE
     Indication: Metastases to abdominal cavity
  13. RITUXIMAB [Suspect]
     Active Substance: RITUXIMAB
     Indication: Diffuse large B-cell lymphoma stage IV
     Dates: start: 20201110
  14. RITUXIMAB [Suspect]
     Active Substance: RITUXIMAB
     Indication: Metastases to spine
  15. RITUXIMAB [Suspect]
     Active Substance: RITUXIMAB
     Indication: Metastases to pleura
  16. RITUXIMAB [Suspect]
     Active Substance: RITUXIMAB
     Indication: Metastases to pancreas
  17. RITUXIMAB [Suspect]
     Active Substance: RITUXIMAB
     Indication: Metastases to lymph nodes
  18. RITUXIMAB [Suspect]
     Active Substance: RITUXIMAB
     Indication: Metastases to abdominal cavity
  19. CISPLATIN [Suspect]
     Active Substance: CISPLATIN
     Indication: Diffuse large B-cell lymphoma stage IV
     Dates: start: 20201110
  20. CISPLATIN [Suspect]
     Active Substance: CISPLATIN
     Indication: Metastases to spine
  21. CISPLATIN [Suspect]
     Active Substance: CISPLATIN
     Indication: Metastases to pleura
  22. CISPLATIN [Suspect]
     Active Substance: CISPLATIN
     Indication: Metastases to pancreas
  23. CISPLATIN [Suspect]
     Active Substance: CISPLATIN
     Indication: Metastases to lymph nodes
  24. CISPLATIN [Suspect]
     Active Substance: CISPLATIN
     Indication: Metastases to abdominal cavity
  25. DEXAMETHASONE [Suspect]
     Active Substance: DEXAMETHASONE
     Indication: Diffuse large B-cell lymphoma stage IV
     Dates: start: 20201110
  26. DEXAMETHASONE [Suspect]
     Active Substance: DEXAMETHASONE
     Indication: Metastases to spine
  27. DEXAMETHASONE [Suspect]
     Active Substance: DEXAMETHASONE
     Indication: Metastases to pleura
  28. DEXAMETHASONE [Suspect]
     Active Substance: DEXAMETHASONE
     Indication: Metastases to pancreas
  29. DEXAMETHASONE [Suspect]
     Active Substance: DEXAMETHASONE
     Indication: Metastases to lymph nodes
  30. DEXAMETHASONE [Suspect]
     Active Substance: DEXAMETHASONE
     Indication: Metastases to abdominal cavity

REACTIONS (2)
  - Neutropenia [Recovering/Resolving]
  - Disseminated mucormycosis [Unknown]

NARRATIVE: CASE EVENT DATE: 20200101
